FAERS Safety Report 4270919-3 (Version None)
Quarter: 2004Q1

REPORT INFORMATION
  Report Type: 
  Country: None (occurrence: None)
  Receive Date: 20040113
  Receipt Date: 20031231
  Transmission Date: 20041129
  Serious: No
  Sender: FDA-Public Use
  Company Number: 04P-056-0246207-00

PATIENT
  Sex: Male

DRUGS (5)
  1. FENOFIBRATE [Suspect]
     Indication: HYPERCHOLESTEROLAEMIA
     Dosage: 200 MG, 1 IN 1 D, PER ORAL
     Route: 048
     Dates: start: 20010701
  2. ASPIRIN [Concomitant]
  3. TELMISARTAN [Concomitant]
  4. BUFLOMEDIL HYDROCHLORIDE [Concomitant]
  5. TRIMETAZIDINE HYDROCHLORIDE [Concomitant]

REACTIONS (1)
  - RENAL FAILURE [None]
